FAERS Safety Report 6465816-9 (Version None)
Quarter: 2009Q4

REPORT INFORMATION
  Report Type: 
  Country: None (occurrence: None)
  Receive Date: 20091124
  Receipt Date: 20091113
  Transmission Date: 20100525
  Serious: Yes (Other)
  Sender: FDA-Public Use
  Company Number: 2009JP006799

PATIENT
  Age: 75 Year
  Sex: Male

DRUGS (1)
  1. FUNGUARD (MICAFUNGIN) INJECTION [Suspect]
     Dosage: 150 MG, /D

REACTIONS (1)
  - ALTERED STATE OF CONSCIOUSNESS [None]
